FAERS Safety Report 14573630 (Version 2)
Quarter: 2018Q1

REPORT INFORMATION
  Report Type: Report from Study
  Country: None (occurrence: AT)
  Receive Date: 20180226
  Receipt Date: 20180315
  Transmission Date: 20180509
  Serious: Yes (Death)
  Sender: FDA-Public Use
  Company Number: AT-ABBVIE-18P-009-2268646-00

PATIENT
  Age: 64 Year
  Sex: Male

DRUGS (15)
  1. VENETOCLAX. [Suspect]
     Active Substance: VENETOCLAX
     Indication: ACUTE MYELOID LEUKAEMIA
     Route: 048
     Dates: start: 20170818, end: 20170818
  2. VENETOCLAX. [Suspect]
     Active Substance: VENETOCLAX
     Route: 048
     Dates: start: 20170819, end: 20170819
  3. VENETOCLAX. [Suspect]
     Active Substance: VENETOCLAX
     Route: 048
     Dates: start: 20170820, end: 20170821
  4. MORAPID [Concomitant]
     Indication: PAIN
     Dosage: UPTO 6 TIMES PER DAY
     Route: 048
     Dates: start: 20170829, end: 20170905
  5. FOLSAN [Concomitant]
     Active Substance: FOLIC ACID
     Indication: PROPHYLAXIS
     Route: 048
     Dates: start: 20170811, end: 20170816
  6. OPTINEM [Concomitant]
     Active Substance: MEROPENEM
     Indication: PYREXIA
     Dates: start: 20170814, end: 20170821
  7. NOXAFIL [Concomitant]
     Active Substance: POSACONAZOLE
     Indication: PROPHYLAXIS
     Route: 048
     Dates: start: 20170901, end: 20170905
  8. KLACID [Concomitant]
     Active Substance: CLARITHROMYCIN
     Indication: PYREXIA
     Route: 048
     Dates: start: 20170901, end: 20170905
  9. AVELOX [Concomitant]
     Active Substance: MOXIFLOXACIN HYDROCHLORIDE
     Indication: PYREXIA
     Dates: start: 20170813, end: 20170831
  10. VALACICLOVIR [Concomitant]
     Active Substance: VALACYCLOVIR HYDROCHLORIDE
     Indication: PROPHYLAXIS
     Route: 048
     Dates: start: 20170811, end: 20170905
  11. VENETOCLAX. [Suspect]
     Active Substance: VENETOCLAX
     Route: 048
     Dates: start: 20170822, end: 20170905
  12. VENDAL RETARD [Concomitant]
     Indication: PAIN
     Dates: start: 20170822, end: 20170827
  13. TAZONAM [Concomitant]
     Active Substance: TAZOBACTAM
     Indication: PYREXIA
     Dates: start: 20170831, end: 20170905
  14. ZYVOXID [Concomitant]
     Active Substance: LINEZOLID
     Indication: PYREXIA
     Route: 048
     Dates: start: 20170814, end: 20170821
  15. PASSEDAN [Concomitant]
     Indication: RESTLESSNESS
     Dosage: 20 GTT
     Route: 048
     Dates: start: 20170811, end: 20170825

REACTIONS (1)
  - General physical health deterioration [Fatal]
